FAERS Safety Report 20781231 (Version 2)
Quarter: 2022Q2

REPORT INFORMATION
  Report Type: Spontaneous
  Country: US (occurrence: US)
  Receive Date: 20220504
  Receipt Date: 20220517
  Transmission Date: 20220721
  Serious: Yes (Other)
  Sender: FDA-Public Use
  Company Number: US-009507513-2204USA008495

PATIENT
  Age: 80 Year
  Sex: Female

DRUGS (3)
  1. LISINOPRIL [Suspect]
     Active Substance: LISINOPRIL
     Indication: Blood pressure abnormal
     Dosage: UNK
     Route: 048
  2. PFIZER-BIONTECH COVID-19 VACCINE [Suspect]
     Active Substance: TOZINAMERAN
  3. LEVOTHYROXINE [Concomitant]
     Active Substance: LEVOTHYROXINE

REACTIONS (23)
  - Atrial fibrillation [Unknown]
  - Autoimmune disorder [Unknown]
  - Muscle mass [Unknown]
  - Induration [Unknown]
  - Peripheral swelling [Unknown]
  - Injection site pain [Unknown]
  - COVID-19 [Unknown]
  - COVID-19 [Unknown]
  - Frustration tolerance decreased [Unknown]
  - Malaise [Unknown]
  - Illness [Unknown]
  - Weight decreased [Unknown]
  - Injection site urticaria [Unknown]
  - Peripheral swelling [Unknown]
  - Arthralgia [Unknown]
  - Rash pruritic [Unknown]
  - Arthritis [Unknown]
  - Fatigue [Unknown]
  - Asthenia [Unknown]
  - Headache [Unknown]
  - Lip swelling [Unknown]
  - Lip swelling [Unknown]
  - Urticaria [Unknown]

NARRATIVE: CASE EVENT DATE: 20211201
